FAERS Safety Report 7705942-7 (Version None)
Quarter: 2011Q3

REPORT INFORMATION
  Report Type: 
  Country: None (occurrence: None)
  Receive Date: 20110818
  Receipt Date: 20110804
  Transmission Date: 20111222
  Serious: Yes (Other)
  Sender: FDA-Public Use
  Company Number: 2009EN000027

PATIENT
  Age: 4 Month
  Sex: Male

DRUGS (1)
  1. ADAGEN [Suspect]
     Indication: COMBINED IMMUNODEFICIENCY
     Dosage: QW; IM
     Route: 030
     Dates: start: 19990701, end: 20041030

REACTIONS (21)
  - DIARRHOEA [None]
  - SKIN PAPILLOMA [None]
  - HAEMOPHILUS INFECTION [None]
  - BRONCHIECTASIS [None]
  - DEVICE RELATED INFECTION [None]
  - EPSTEIN-BARR VIRUS INFECTION [None]
  - RESPIRATORY TRACT INFECTION [None]
  - DISEASE RECURRENCE [None]
  - HYPOACUSIS [None]
  - CYTOMEGALOVIRUS INFECTION [None]
  - RHINITIS [None]
  - PYREXIA [None]
  - NASOPHARYNGITIS [None]
  - VARICELLA [None]
  - PNEUMONITIS [None]
  - HEARING IMPAIRED [None]
  - HEPATIC ENZYME INCREASED [None]
  - UPPER RESPIRATORY TRACT INFECTION [None]
  - OTITIS MEDIA [None]
  - MASTOIDITIS [None]
  - COUGH [None]
